FAERS Safety Report 5082241-6 (Version None)
Quarter: 2006Q3

REPORT INFORMATION
  Report Type: 
  Country: None (occurrence: None)
  Receive Date: 20060815
  Receipt Date: 20060815
  Transmission Date: 20061208
  Serious: No
  Sender: FDA-Public Use
  Company Number: None

PATIENT
  Sex: Male
  Weight: 109.5 kg

DRUGS (3)
  1. CYCLOPHOSPHAMIDE [Suspect]
     Dosage: 1368 MG
  2. PENTOSTATIN [Suspect]
     Dosage: 9.2 MG
  3. RITUXIMAB (MAAB C2B8 ANTI CD20, CHIMERIC) [Suspect]
     Dosage: 1826 MG

REACTIONS (3)
  - ANAEMIA [None]
  - NEUTROPENIA [None]
  - THROMBOCYTOPENIA [None]
